FAERS Safety Report 8133572-4 (Version None)
Quarter: 2012Q1

REPORT INFORMATION
  Report Type: 
  Country: None (occurrence: None)
  Receive Date: 20120213
  Receipt Date: 20120209
  Transmission Date: 20120608
  Serious: Yes (Death, Hospitalization)
  Sender: FDA-Public Use
  Company Number: US-B.I. PHARMACEUTICALS,INC./RIDGEFIELD-2011-BP-12960BP

PATIENT
  Age: 86 Year
  Sex: Male

DRUGS (6)
  1. TOPROL-XL [Concomitant]
  2. NORVASC [Concomitant]
  3. AVODART [Concomitant]
  4. PRADAXA [Suspect]
     Indication: HEART RATE IRREGULAR
     Dosage: 300 MG
     Route: 048
     Dates: start: 20110418, end: 20110513
  5. PRADAXA [Suspect]
     Indication: ATRIAL FIBRILLATION
  6. LIPITOR [Concomitant]

REACTIONS (9)
  - ANAEMIA [None]
  - GASTRIC ULCER [None]
  - DYSPNOEA [None]
  - PNEUMONIA [None]
  - DUODENAL ULCER [None]
  - HAEMORRHAGE [None]
  - URINARY RETENTION [None]
  - CARDIAC FAILURE CONGESTIVE [None]
  - DELIRIUM [None]
